FAERS Safety Report 4322999-4 (Version None)
Quarter: 2004Q1

REPORT INFORMATION
  Report Type: 
  Country: None (occurrence: None)
  Receive Date: 20040322
  Receipt Date: 20040311
  Transmission Date: 20041129
  Serious: Yes (Hospitalization)
  Sender: FDA-Public Use
  Company Number: MK200403-0122-1

PATIENT
  Age: 73 Year
  Sex: Female

DRUGS (6)
  1. ANAFRANIL [Suspect]
     Dates: start: 20040203, end: 20040204
  2. PERIDYS [Concomitant]
  3. ASPIRINE PH8 [Concomitant]
  4. ATHYMIL [Concomitant]
  5. RYTHMODAN [Concomitant]
  6. ESBERIVEN FORTE [Concomitant]

REACTIONS (1)
  - HEPATITIS CHOLESTATIC [None]
